FAERS Safety Report 24086855 (Version 1)
Quarter: 2024Q3

REPORT INFORMATION
  Report Type: Spontaneous
  Country: ES (occurrence: ES)
  Receive Date: 20240713
  Receipt Date: 20240713
  Transmission Date: 20241016
  Serious: Yes (Other)
  Sender: BAXTER
  Company Number: None

PATIENT
  Sex: Male

DRUGS (4)
  1. DEXTROSE MONOHYDRATE [Interacting]
     Active Substance: DEXTROSE MONOHYDRATE
     Dosage: GLUCOSE MONOHYDRATE (119 MH)
     Route: 042
  2. SODIUM CHLORIDE [Interacting]
     Active Substance: SODIUM CHLORIDE
     Dosage: (SODIUM CHLORDIE (125 CL)
     Route: 042
     Dates: start: 20240508
  3. ANHYDROUS DEXTROSE [Interacting]
     Active Substance: ANHYDROUS DEXTROSE
     Dosage: GLUCOSE: ANHYDROUS (119ZU)
     Route: 042
  4. POTASSIUM CHLORIDE [Interacting]
     Active Substance: POTASSIUM CHLORIDE
     Dosage: POTASSIUM CHLORIDE (123CL)
     Route: 042
     Dates: start: 20240508

REACTIONS (3)
  - Skin ulcer [Unknown]
  - Catheter site extravasation [Unknown]
  - Administration site oedema [Unknown]
